FAERS Safety Report 10006296 (Version 1)
Quarter: 2014Q1

REPORT INFORMATION
  Report Type: Spontaneous
  Country: NZ (occurrence: NZ)
  Receive Date: 20140313
  Receipt Date: 20140313
  Transmission Date: 20141002
  Serious: No
  Sender: FDA-Public Use
  Company Number: NZ-SA-2014SA025306

PATIENT
  Age: 40 Year
  Sex: Female

DRUGS (4)
  1. ARAVA [Suspect]
     Indication: RHEUMATOID ARTHRITIS
     Route: 065
     Dates: start: 20130912, end: 20131031
  2. IBUPROFEN [Concomitant]
  3. PARACETAMOL [Concomitant]
  4. PREDNISOLONE [Concomitant]

REACTIONS (1)
  - Exposure during pregnancy [Unknown]
